FAERS Safety Report 12797915 (Version 1)
Quarter: 2016Q3

REPORT INFORMATION
  Report Type: Spontaneous
  Country: US (occurrence: US)
  Receive Date: 20160930
  Receipt Date: 20160930
  Transmission Date: 20161109
  Serious: No
  Sender: FDA-Public Use
  Company Number: US-LUPIN PHARMACEUTICALS INC.-E2B_00005648

PATIENT
  Age: 67 Year
  Sex: Female
  Weight: 30.87 kg

DRUGS (2)
  1. CEPHALEXIN CAPSULES USP 500MG [Suspect]
     Active Substance: CEPHALEXIN
     Route: 048
     Dates: start: 20160609
  2. CEPHALEXIN CAPSULES USP 500MG [Suspect]
     Active Substance: CEPHALEXIN
     Indication: PRODUCT USED FOR UNKNOWN INDICATION
     Route: 048
     Dates: start: 20160604, end: 20160609

REACTIONS (2)
  - Product odour abnormal [Unknown]
  - Abdominal discomfort [Not Recovered/Not Resolved]

NARRATIVE: CASE EVENT DATE: 20160604
